FAERS Safety Report 7625160-0 (Version None)
Quarter: 2011Q3

REPORT INFORMATION
  Report Type: 
  Country: None (occurrence: None)
  Receive Date: 20110712
  Receipt Date: 20110627
  Transmission Date: 20111222
  Serious: Yes (Other)
  Sender: FDA-Public Use
  Company Number: 2011P1007366

PATIENT
  Age: 61 Year
  Sex: Male
  Weight: 95.2554 kg

DRUGS (18)
  1. FENTANYL-75 [Suspect]
     Indication: BACK DISORDER
     Dosage: 1 PATCH, Q72H, TDER
     Route: 062
     Dates: start: 20110608
  2. FENTANYL-75 [Suspect]
     Indication: CARPAL TUNNEL SYNDROME
     Dosage: 1 PATCH, Q72H, TDER
     Route: 062
     Dates: start: 20110608
  3. FENTANYL-75 [Suspect]
     Indication: HIP ARTHROPLASTY
     Dosage: 1 PATCH, Q72H, TDER
     Route: 062
     Dates: start: 20110608
  4. SINGULAIR [Concomitant]
  5. TRICOR [Concomitant]
  6. OXYCODONE HCL [Concomitant]
  7. FENTANYL [Suspect]
     Indication: BACK DISORDER
     Dosage: TDER
     Route: 062
     Dates: end: 20110608
  8. FENTANYL [Suspect]
     Indication: HIP ARTHROPLASTY
     Dosage: TDER
     Route: 062
     Dates: end: 20110608
  9. FENTANYL [Suspect]
     Indication: CARPAL TUNNEL SYNDROME
     Dosage: TDER
     Route: 062
     Dates: end: 20110608
  10. COUMADIN [Concomitant]
  11. DILTIAZEM [Concomitant]
  12. KLONOPIN [Concomitant]
  13. NEXIUM [Concomitant]
  14. ADVAIR DISKUS 100/50 [Concomitant]
  15. ZETIA [Concomitant]
  16. HAND HELD INHALER [Concomitant]
  17. FUROSEMIDE [Concomitant]
  18. KLOR-CON [Concomitant]

REACTIONS (10)
  - PULMONARY FIBROSIS [None]
  - ACCIDENTAL EXPOSURE [None]
  - HEART RATE INCREASED [None]
  - PRODUCT ADHESION ISSUE [None]
  - DEVICE BREAKAGE [None]
  - DEVICE LEAKAGE [None]
  - HEADACHE [None]
  - INADEQUATE ANALGESIA [None]
  - BLOOD GLUCOSE INCREASED [None]
  - LUNG NEOPLASM [None]
